FAERS Safety Report 4509795-X (Version None)
Quarter: 2004Q4

REPORT INFORMATION
  Report Type: 
  Country: None (occurrence: None)
  Receive Date: 20041124
  Receipt Date: 20040708
  Transmission Date: 20050328
  Serious: No
  Sender: FDA-Public Use
  Company Number: US-BRISTOL-MYERS SQUIBB COMPANY-12635454

PATIENT
  Age: 69 Year
  Sex: Female
  Weight: 46 kg

DRUGS (3)
  1. AVALIDE [Suspect]
     Indication: HYPERTENSION
     Dosage: 150/12.5 MG. THERAPY DATE: 23-MAY-2004 OR 24-MAY-2004.
     Route: 048
     Dates: start: 20040501
  2. KLONOPIN [Concomitant]
  3. MOTRIN [Concomitant]
     Dosage: AS NEEDED.

REACTIONS (4)
  - ANOREXIA [None]
  - CONSTIPATION [None]
  - DRUG INEFFECTIVE [None]
  - FLATULENCE [None]
